FAERS Safety Report 24416599 (Version 1)
Quarter: 2024Q4

REPORT INFORMATION
  Report Type: Spontaneous
  Country: AT (occurrence: AT)
  Receive Date: 20241009
  Receipt Date: 20241009
  Transmission Date: 20250115
  Serious: Yes (Other)
  Sender: AMGEN
  Company Number: AT-AMGEN-AUTSP2024193884

PATIENT
  Age: 70 Year
  Sex: Female

DRUGS (12)
  1. NPLATE [Suspect]
     Active Substance: ROMIPLOSTIM
     Indication: Myelodysplastic syndrome
     Dosage: 1 MICROGRAM/KILOGRAM, Q2WK (INCREASING DOSE UP TO 10MCG/KG BW, DECREASING DOSE TO 250MCG/WK)
     Route: 065
     Dates: start: 20220607
  2. NPLATE [Suspect]
     Active Substance: ROMIPLOSTIM
     Dosage: 2 MICROGRAM/KILOGRAM, QWK
     Route: 065
     Dates: start: 20220614
  3. NPLATE [Suspect]
     Active Substance: ROMIPLOSTIM
     Dosage: 3 MICROGRAM/KILOGRAM, QWK
     Route: 065
     Dates: start: 20220621
  4. NPLATE [Suspect]
     Active Substance: ROMIPLOSTIM
     Dosage: 4 MICROGRAM/KILOGRAM, QWK
     Route: 065
     Dates: start: 20220628
  5. NPLATE [Suspect]
     Active Substance: ROMIPLOSTIM
     Dosage: 5 MICROGRAM/KILOGRAM, QWK
     Route: 065
     Dates: start: 20220705
  6. NPLATE [Suspect]
     Active Substance: ROMIPLOSTIM
     Dosage: 6 MICROGRAM/KILOGRAM, QWK
     Route: 065
     Dates: start: 20220713
  7. NPLATE [Suspect]
     Active Substance: ROMIPLOSTIM
     Dosage: 7 MICROGRAM/KILOGRAM, QWK
     Route: 065
     Dates: start: 20220725
  8. NPLATE [Suspect]
     Active Substance: ROMIPLOSTIM
     Dosage: 8 MICROGRAM/KILOGRAM, QWK
     Route: 065
     Dates: start: 20220801
  9. NPLATE [Suspect]
     Active Substance: ROMIPLOSTIM
     Dosage: 9 MICROGRAM/KILOGRAM, QWK
     Route: 065
     Dates: start: 20220809
  10. NPLATE [Suspect]
     Active Substance: ROMIPLOSTIM
     Dosage: 600 MICROGRAM (10 MCG/KG), QWK
     Route: 065
     Dates: start: 20220823
  11. NPLATE [Suspect]
     Active Substance: ROMIPLOSTIM
     Dosage: GRADUAL REDUCTION IN DOSE UP TO 250 MCG / WEEK, QWK
     Route: 065
     Dates: start: 202312
  12. NPLATE [Suspect]
     Active Substance: ROMIPLOSTIM
     Dosage: 250 MICROGRAM, QWK
     Route: 065
     Dates: start: 20240812

REACTIONS (2)
  - Myelodysplastic syndrome [Unknown]
  - Off label use [Unknown]

NARRATIVE: CASE EVENT DATE: 20220607
